FAERS Safety Report 16930747 (Version 4)
Quarter: 2021Q4

REPORT INFORMATION
  Report Type: Report from Study
  Country: JP (occurrence: JP)
  Receive Date: 20191017
  Receipt Date: 20211211
  Transmission Date: 20220303
  Serious: Yes (Hospitalization, Other)
  Sender: FDA-Public Use
  Company Number: JP-JNJFOC-20191007585

PATIENT
  Age: 47 Year
  Sex: Male
  Weight: 61.9 kg

DRUGS (27)
  1. STELARA [Suspect]
     Active Substance: USTEKINUMAB
     Indication: Crohn^s disease
     Route: 041
     Dates: start: 20180903, end: 20180903
  2. STELARA [Suspect]
     Active Substance: USTEKINUMAB
     Route: 058
     Dates: start: 20181029, end: 20181029
  3. STELARA [Suspect]
     Active Substance: USTEKINUMAB
     Route: 058
     Dates: start: 20190121, end: 20190121
  4. STELARA [Suspect]
     Active Substance: USTEKINUMAB
     Route: 058
     Dates: start: 20190422, end: 20190422
  5. STELARA [Suspect]
     Active Substance: USTEKINUMAB
     Route: 058
     Dates: start: 20190809, end: 20190809
  6. STELARA [Suspect]
     Active Substance: USTEKINUMAB
     Route: 058
     Dates: start: 20191004, end: 20191004
  7. STELARA [Suspect]
     Active Substance: USTEKINUMAB
     Route: 058
     Dates: start: 20191213, end: 20191213
  8. STELARA [Suspect]
     Active Substance: USTEKINUMAB
     Route: 058
     Dates: start: 20100207, end: 20100207
  9. STELARA [Suspect]
     Active Substance: USTEKINUMAB
     Route: 058
     Dates: start: 20200403, end: 20200403
  10. STELARA [Suspect]
     Active Substance: USTEKINUMAB
     Route: 058
     Dates: start: 20200529, end: 20200529
  11. STELARA [Suspect]
     Active Substance: USTEKINUMAB
     Route: 058
     Dates: start: 20200731, end: 20200731
  12. STELARA [Suspect]
     Active Substance: USTEKINUMAB
     Route: 058
     Dates: start: 20200925, end: 20200925
  13. STELARA [Suspect]
     Active Substance: USTEKINUMAB
     Route: 058
     Dates: start: 20201120, end: 20201120
  14. STELARA [Suspect]
     Active Substance: USTEKINUMAB
     Route: 058
     Dates: start: 20210201, end: 20210201
  15. STELARA [Suspect]
     Active Substance: USTEKINUMAB
     Route: 058
     Dates: start: 20210430, end: 20210430
  16. STELARA [Suspect]
     Active Substance: USTEKINUMAB
     Route: 058
     Dates: start: 20210625, end: 20210625
  17. STELARA [Suspect]
     Active Substance: USTEKINUMAB
     Route: 058
     Dates: start: 20210821, end: 20210821
  18. PREDONINE                          /00016201/ [Concomitant]
     Indication: Crohn^s disease
     Route: 048
  19. IMURAN                             /00001501/ [Concomitant]
     Indication: Crohn^s disease
     Route: 048
  20. PENTASA [Concomitant]
     Active Substance: MESALAMINE
     Indication: Crohn^s disease
     Route: 048
  21. BIOFERMIN                          /07958301/ [Concomitant]
     Indication: Crohn^s disease
     Route: 048
  22. HERBALS [Concomitant]
     Active Substance: HERBALS
     Indication: Crohn^s disease
     Route: 048
     Dates: start: 20190222, end: 20190224
  23. HERBALS [Concomitant]
     Active Substance: HERBALS
     Indication: Crohn^s disease
     Route: 048
     Dates: start: 20190225
  24. OMEPRAL                            /00661201/ [Concomitant]
     Indication: Prophylaxis
     Dosage: UNKNOWN
     Route: 065
  25. LOPERAMIDE [Concomitant]
     Active Substance: LOPERAMIDE
     Indication: Crohn^s disease
     Dosage: P.R.N
     Route: 048
     Dates: start: 20190705
  26. CALCIUM LACTATE [Concomitant]
     Active Substance: CALCIUM LACTATE
     Indication: Product used for unknown indication
     Dosage: UNKNOWN
     Route: 048
  27. EDOXABAN TOSYLATE [Concomitant]
     Active Substance: EDOXABAN TOSYLATE
     Indication: Product used for unknown indication
     Dosage: UNKNOWN
     Route: 048

REACTIONS (3)
  - Deep vein thrombosis [Recovering/Resolving]
  - Pulmonary embolism [Recovering/Resolving]
  - Hypocalcaemia [Recovering/Resolving]

NARRATIVE: CASE EVENT DATE: 20181201
